FAERS Safety Report 5460722-0 (Version None)
Quarter: 2007Q3

REPORT INFORMATION
  Report Type: 
  Country: None (occurrence: None)
  Receive Date: 20070919
  Receipt Date: 20070907
  Transmission Date: 20080115
  Serious: Yes (Hospitalization)
  Sender: FDA-Public Use
  Company Number: CN-MERCK-0708CHN00007

PATIENT
  Age: 65 Year
  Sex: Female

DRUGS (2)
  1. FOSAMAX [Suspect]
     Indication: OSTEOPOROSIS
     Route: 048
     Dates: start: 20070730, end: 20070730
  2. CALCIUM CARBONATE AND CHOLECALCIFEROL [Concomitant]
     Indication: OSTEOPOROSIS
     Route: 048
     Dates: start: 20070730

REACTIONS (8)
  - BLOOD GLUCOSE INCREASED [None]
  - DECREASED APPETITE [None]
  - ELECTROCARDIOGRAM ST SEGMENT ABNORMAL [None]
  - HYPERHIDROSIS [None]
  - LOSS OF CONSCIOUSNESS [None]
  - MYALGIA [None]
  - PALPITATIONS [None]
  - RED BLOOD CELL SEDIMENTATION RATE INCREASED [None]
